FAERS Safety Report 8372414-9 (Version None)
Quarter: 2012Q2

REPORT INFORMATION
  Report Type: 
  Country: None (occurrence: None)
  Receive Date: 20120521
  Receipt Date: 20120515
  Transmission Date: 20120825
  Serious: Yes (Disabling)
  Sender: FDA-Public Use
  Company Number: GB-ACCORD-013517

PATIENT
  Age: 63 Year
  Sex: Male

DRUGS (7)
  1. ADALAT CC [Concomitant]
  2. RANITIDINE [Concomitant]
  3. TOPIRAMATE [Suspect]
     Dosage: DOSE GRADUALLY REDUCED DOWN TO 25MG TWICE A DAY AND DISCONTINUED
     Route: 048
     Dates: start: 20120227, end: 20120330
  4. LAMOTRIGINE [Concomitant]
     Dosage: GRADUALLY DECREASE LAMOTRIGINE
  5. ATORVASTATIN CALCIUM [Concomitant]
  6. LIDOCAINE [Concomitant]
     Dosage: IV LIDOCAINE INFUSION (INITIALLY 15ML/HR, INCREASED TO 30ML/HR)
     Route: 042
  7. TAMSULOSIN HCL [Concomitant]

REACTIONS (6)
  - NIGHT SWEATS [None]
  - DEPRESSED MOOD [None]
  - AGGRESSION [None]
  - MEMORY IMPAIRMENT [None]
  - LETHARGY [None]
  - OFF LABEL USE [None]
